FAERS Safety Report 5384293-2 (Version None)
Quarter: 2007Q3

REPORT INFORMATION
  Report Type: 
  Country: None (occurrence: None)
  Receive Date: 20070710
  Receipt Date: 20060719
  Transmission Date: 20080115
  Serious: Yes (Other)
  Sender: FDA-Public Use
  Company Number: 2006-01871

PATIENT
  Age: 57 Year
  Sex: Female

DRUGS (6)
  1. VELCADE [Suspect]
     Indication: MULTIPLE MYELOMA
     Dosage: 1.60 MG/M2, IV BOLUS; 0.90 MG/M2
     Route: 040
     Dates: start: 20060204
  2. DIPHENHYDRAMINE HCL [Concomitant]
  3. DEXAMETHASONE 0.5MG TAB [Concomitant]
  4. ALOXI [Concomitant]
  5. SODIUM CHLORIDE [Concomitant]
  6. PROCRIT [Concomitant]

REACTIONS (2)
  - DIARRHOEA [None]
  - HYPOTENSION [None]
